FAERS Safety Report 6525734-4 (Version None)
Quarter: 2010Q1

REPORT INFORMATION
  Report Type: 
  Country: None (occurrence: None)
  Receive Date: 20100104
  Receipt Date: 20091218
  Transmission Date: 20100710
  Serious: No
  Sender: FDA-Public Use
  Company Number: US-B.I. PHARMACEUTICALS,INC./RIDGEFIELD-2009-BP-13867BP

PATIENT
  Sex: Female

DRUGS (17)
  1. AGGRENOX [Suspect]
     Indication: PROPHYLAXIS
     Route: 048
     Dates: start: 20091102, end: 20091105
  2. AGGRENOX [Suspect]
     Indication: TRANSIENT ISCHAEMIC ATTACK
  3. POTKLOR [Concomitant]
     Indication: BLOOD POTASSIUM
  4. PANTOPRAZOLE [Concomitant]
     Indication: GASTROOESOPHAGEAL REFLUX DISEASE
  5. LISINOPRIL [Concomitant]
     Indication: HYPERTENSION
  6. AMLODIPINE [Concomitant]
     Indication: HYPERTENSION
  7. ATENOLOL [Concomitant]
     Indication: HYPERTENSION
  8. MULTI-VITAMIN [Concomitant]
  9. PROTONIX [Concomitant]
  10. ASPIRIN [Concomitant]
  11. CALCIUM CITRATE [Concomitant]
  12. LOVAZA [Concomitant]
  13. RECLAST [Concomitant]
  14. TYLENOL (CAPLET) [Concomitant]
  15. ZYRTEC [Concomitant]
  16. ARTIFICIAL TEARS [Concomitant]
  17. CLOBETASOL PROPIONATE [Concomitant]

REACTIONS (4)
  - FATIGUE [None]
  - HALLUCINATION [None]
  - NAUSEA [None]
  - TINNITUS [None]
